FAERS Safety Report 9100945 (Version 1)
Quarter: 2013Q1

REPORT INFORMATION
  Report Type: Spontaneous
  Country: US (occurrence: None)
  Receive Date: 20130220
  Receipt Date: 20130220
  Transmission Date: 20140127
  Serious: Yes (Other)
  Sender: FDA-Public Use
  Company Number: None

PATIENT
  Age: 78 Year
  Sex: Male

DRUGS (4)
  1. FORTEO 600MCG/2.4ML ELI LILLY [Suspect]
     Indication: OSTEOPOROSIS
     Route: 058
     Dates: start: 20121215, end: 20130205
  2. AMBIEN [Concomitant]
  3. GLUCOPHAGE [Concomitant]
  4. ZANTAC [Concomitant]

REACTIONS (2)
  - Dyspnoea [None]
  - Arthropathy [None]
